FAERS Safety Report 18239785 (Version 2)
Quarter: 2020Q3

REPORT INFORMATION
  Report Type: Other
  Country: US (occurrence: US)
  Receive Date: 20200908
  Receipt Date: 20200927
  Transmission Date: 20201103
  Serious: Yes (Death)
  Sender: FDA-Public Use
  Company Number: US-ROCHE-2672036

PATIENT
  Age: 75 Year
  Sex: Female

DRUGS (3)
  1. RITUXAN [Suspect]
     Active Substance: RITUXIMAB
     Dosage: 10 MG VIAL INFUSION, INFUSE 1000 MG INTRAVENOUSLY ON DAY(S) 1 AND DAY(S) 15, THEN REPEAT EVERY 6?MON
     Route: 042
  2. RITUXAN [Suspect]
     Active Substance: RITUXIMAB
     Indication: RHEUMATOID ARTHRITIS
     Dosage: 50 ML, DAY 1 AND DAY 15 REPEAT EVERY 6 MONTH
     Route: 042
     Dates: start: 201812, end: 20200306
  3. RITUXAN [Suspect]
     Active Substance: RITUXIMAB
     Dosage: 50 ML VIAL INFUSION, INFUSE 1000 MG INTRAVENOUSLY ON DAY(S) 1 AND DAY(S) 15, THEN REPEAT EVERY 6?MON
     Route: 042

REACTIONS (1)
  - Death [Fatal]

NARRATIVE: CASE EVENT DATE: 20200828
